FAERS Safety Report 9504540 (Version 3)
Quarter: 2013Q3

REPORT INFORMATION
  Report Type: Report from Study
  Country: DE (occurrence: DE)
  Receive Date: 20130906
  Receipt Date: 20130917
  Transmission Date: 20140515
  Serious: Yes (Disabling)
  Sender: FDA-Public Use
  Company Number: DE-AMGEN-DEUNI2013062222

PATIENT
  Age: 63 Year
  Sex: Male
  Weight: 70 kg

DRUGS (3)
  1. PANITUMUMAB [Suspect]
     Indication: RECTAL CANCER
     Dosage: UNK UNK, Q2WK
     Route: 042
     Dates: start: 20121120, end: 20130314
  2. CAPECITABINE [Suspect]
     Indication: PRODUCT USED FOR UNKNOWN INDICATION
     Route: 065
  3. STIVARGA [Concomitant]
     Indication: RECTAL CANCER
     Dosage: UNK

REACTIONS (6)
  - Rash [Recovered/Resolved]
  - Dermatitis acneiform [Recovered/Resolved]
  - Dry skin [Recovered/Resolved]
  - Skin atrophy [Recovered/Resolved]
  - Skin disorder [Recovered/Resolved]
  - Skin ulcer [Recovered/Resolved]
